FAERS Safety Report 16094189 (Version 1)
Quarter: 2019Q2

REPORT INFORMATION
  Report Type: Spontaneous
  Country: US (occurrence: US)
  Receive Date: 20190319
  Receipt Date: 20190319
  Transmission Date: 20190711
  Serious: No
  Sender: FDA-Public Use
  Company Number: None

PATIENT
  Sex: Male

DRUGS (2)
  1. PIOGLITAZONE. [Suspect]
     Active Substance: PIOGLITAZONE
     Dates: start: 20130524, end: 20170731
  2. METFORMIN [Suspect]
     Active Substance: METFORMIN HYDROCHLORIDE
     Dates: start: 20110317, end: 20190228

REACTIONS (4)
  - Diabetes mellitus inadequate control [None]
  - Treatment failure [None]
  - Drug ineffective [None]
  - Glycosylated haemoglobin increased [None]
